FAERS Safety Report 10275530 (Version 1)
Quarter: 2014Q2

REPORT INFORMATION
  Report Type: Spontaneous
  Country: US (occurrence: None)
  Receive Date: 20140630
  Receipt Date: 20140630
  Transmission Date: 20141212
  Serious: Yes (Other)
  Sender: FDA-Public Use
  Company Number: None

PATIENT
  Age: 1 Year
  Sex: Female
  Weight: 10.43 kg

DRUGS (2)
  1. HYLANDS TEETHING TABLETS [Suspect]
     Indication: TOOTH DISORDER
     Dates: start: 20130909, end: 20140618
  2. HYLANDS TEETHING TABLETS [Suspect]
     Indication: PAIN
     Dates: start: 20130909, end: 20140618

REACTIONS (3)
  - Convulsion [None]
  - Dyspnoea [None]
  - Fatigue [None]
